FAERS Safety Report 7473762-7 (Version None)
Quarter: 2011Q2

REPORT INFORMATION
  Report Type: 
  Country: None (occurrence: None)
  Receive Date: 20110511
  Receipt Date: 20110502
  Transmission Date: 20111010
  Serious: Yes (Other)
  Sender: FDA-Public Use
  Company Number: IT-JNJFOC-20110502729

PATIENT
  Age: 14 Year
  Sex: Male
  Weight: 35 kg

DRUGS (1)
  1. HALDOL [Suspect]
     Indication: ILL-DEFINED DISORDER
     Route: 048

REACTIONS (1)
  - DRUG ABUSE [None]
